FAERS Safety Report 8677543 (Version 2)
Quarter: 2012Q4

REPORT INFORMATION
  Report Type: 
  Country: DE (occurrence: DE)
  Receive Date: 20120723
  Receipt Date: 20120906
  Transmission Date: 20130627
  Serious: Yes (Hospitalization, Other)
  Sender: FDA-Public Use
  Company Number: PHHY2012DE062482

PATIENT
  Sex: Female

DRUGS (4)
  1. RASILEZ [Suspect]
     Indication: HYPERTENSION
     Dosage: 1 DF, QD
     Route: 048
  2. RAMIPRIL [Concomitant]
     Dosage: 1 DF, QD
     Route: 048
  3. RAMIPRIL PLUS [Concomitant]
     Dosage: 1 DF, QD
     Route: 048
  4. BETA BLOCKING AGENTS [Concomitant]
     Dosage: 95 mg, QD
     Route: 048

REACTIONS (16)
  - Toxicity to various agents [Not Recovered/Not Resolved]
  - Swelling face [Not Recovered/Not Resolved]
  - Lip swelling [Not Recovered/Not Resolved]
  - Headache [Not Recovered/Not Resolved]
  - Paraesthesia [Not Recovered/Not Resolved]
  - Lymphadenopathy [Not Recovered/Not Resolved]
  - Flushing [Not Recovered/Not Resolved]
  - Dry mouth [Not Recovered/Not Resolved]
  - Cough [Not Recovered/Not Resolved]
  - Coronary artery disease [Unknown]
  - Condition aggravated [Unknown]
  - Influenza like illness [Recovered/Resolved]
  - Alopecia [Not Recovered/Not Resolved]
  - Eye inflammation [Recovered/Resolved]
  - Adrenal disorder [Unknown]
  - Blood pressure increased [Unknown]
